FAERS Safety Report 7512901-6 (Version None)
Quarter: 2011Q2

REPORT INFORMATION
  Report Type: 
  Country: None (occurrence: None)
  Receive Date: 20110531
  Receipt Date: 20101124
  Transmission Date: 20111010
  Serious: No
  Sender: FDA-Public Use
  Company Number: US-NOVEN-ALL1-2010-06176

PATIENT
  Sex: Male
  Weight: 41.723 kg

DRUGS (2)
  1. DAYTRANA [Suspect]
     Dosage: 10 MG, 1X/DAY:QD
     Route: 062
     Dates: start: 20101101
  2. STRATTERA [Concomitant]
     Dosage: 60 MG, 1X/DAY:QD
     Route: 048
     Dates: start: 20080101

REACTIONS (3)
  - NO ADVERSE EVENT [None]
  - WRONG TECHNIQUE IN DRUG USAGE PROCESS [None]
  - PRODUCT QUALITY ISSUE [None]
